FAERS Safety Report 15129943 (Version 2)
Quarter: 2018Q3

REPORT INFORMATION
  Report Type: Spontaneous
  Country: US (occurrence: US)
  Receive Date: 20180711
  Receipt Date: 20180815
  Transmission Date: 20181010
  Serious: Yes (Hospitalization)
  Sender: FDA-Public Use
  Company Number: US-ASTRAZENECA-2018SE86744

PATIENT
  Age: 25183 Day
  Sex: Male
  Weight: 92.1 kg

DRUGS (1)
  1. SYMBICORT [Suspect]
     Active Substance: BUDESONIDE\FORMOTEROL FUMARATE DIHYDRATE
     Indication: ASTHMA
     Dosage: 80/4.5 MCG, 2 INHALATIONS, TWO TIMES A DAY
     Route: 055
     Dates: start: 2016

REACTIONS (6)
  - Device issue [Unknown]
  - Drug dose omission [Unknown]
  - Underdose [Unknown]
  - Wrong technique in device usage process [Unknown]
  - Kidney infection [Unknown]
  - Intentional device misuse [Unknown]

NARRATIVE: CASE EVENT DATE: 20180701
